FAERS Safety Report 19284091 (Version 1)
Quarter: 2021Q2

REPORT INFORMATION
  Report Type: Spontaneous
  Country: US (occurrence: US)
  Receive Date: 20210521
  Receipt Date: 20210521
  Transmission Date: 20210717
  Serious: Yes (Death, Hospitalization)
  Sender: FDA-Public Use
  Company Number: None

PATIENT
  Age: 76 Year
  Sex: Female
  Weight: 59.85 kg

DRUGS (9)
  1. TEGRETOL [Concomitant]
     Active Substance: CARBAMAZEPINE
  2. MELATONIN [Concomitant]
     Active Substance: MELATONIN
  3. VITAMIN D3 [Concomitant]
     Active Substance: CHOLECALCIFEROL
  4. ATENOLOL. [Concomitant]
     Active Substance: ATENOLOL
  5. SIMVASTATIN. [Concomitant]
     Active Substance: SIMVASTATIN
  6. LISINOPRIL. [Concomitant]
     Active Substance: LISINOPRIL
  7. LAMICTAL [Concomitant]
     Active Substance: LAMOTRIGINE
  8. ELIQUIS [Suspect]
     Active Substance: APIXABAN
     Route: 048
     Dates: start: 20190801, end: 20200324
  9. ELIQUIS [Concomitant]
     Active Substance: APIXABAN

REACTIONS (5)
  - Cerebral haemorrhage [None]
  - Legal problem [None]
  - Chromaturia [None]
  - Product label issue [None]
  - Haemorrhagic stroke [None]

NARRATIVE: CASE EVENT DATE: 20190801
